FAERS Safety Report 7131100-3 (Version None)
Quarter: 2010Q4

REPORT INFORMATION
  Report Type: 
  Country: None (occurrence: None)
  Receive Date: 20101124
  Receipt Date: 20101124
  Transmission Date: 20110411
  Serious: No
  Sender: FDA-Public Use
  Company Number: None

PATIENT
  Age: 49 Year
  Sex: Female
  Weight: 81.6475 kg

DRUGS (1)
  1. RANITIDINE [Suspect]
     Indication: NAUSEA
     Dosage: 1 PILL TWICE DAILY
     Dates: start: 20100401, end: 20101001

REACTIONS (5)
  - DRUG INEFFECTIVE [None]
  - GLOSSODYNIA [None]
  - PRODUCT ODOUR ABNORMAL [None]
  - PRODUCT SUBSTITUTION ISSUE [None]
  - PRODUCT TASTE ABNORMAL [None]
